FAERS Safety Report 9702298 (Version 1)
Quarter: 2013Q4

REPORT INFORMATION
  Report Type: Spontaneous
  Country: US (occurrence: US)
  Receive Date: 20131121
  Receipt Date: 20131121
  Transmission Date: 20140711
  Serious: Yes (Hospitalization)
  Sender: FDA-Public Use
  Company Number: US-MYLANLABS-2013S1025463

PATIENT
  Age: 58 Year
  Sex: Female

DRUGS (5)
  1. DILTIAZEM [Suspect]
     Indication: OVERDOSE
     Dosage: 30-40 PILLS
     Route: 048
  2. INSULIN [Suspect]
     Indication: TOXICITY TO VARIOUS AGENTS
     Dosage: 1 U/ML AT 1 U/KG/H; TITRATED TO 6 U/KG/H (MAXIMUM)
     Route: 065
  3. INSULIN [Suspect]
     Indication: TOXICITY TO VARIOUS AGENTS
     Dosage: 1 U/ML AT 6 U/KG/H (MAXIMUM)
     Route: 065
  4. METFORMIN [Concomitant]
     Route: 065
  5. CITALOPRAM [Concomitant]
     Route: 065

REACTIONS (7)
  - Toxicity to various agents [Recovered/Resolved]
  - Atrioventricular block first degree [Recovered/Resolved]
  - Fluid overload [Recovered/Resolved]
  - Pulmonary oedema [Recovered/Resolved]
  - Generalised oedema [Recovered/Resolved]
  - Respiratory failure [Recovered/Resolved]
  - Overdose [Recovered/Resolved]
